FAERS Safety Report 16564627 (Version 3)
Quarter: 2019Q3

REPORT INFORMATION
  Report Type: Report from Study
  Country: US (occurrence: US)
  Receive Date: 20190712
  Receipt Date: 20190909
  Transmission Date: 20191004
  Serious: Yes (Hospitalization, Other)
  Sender: FDA-Public Use
  Company Number: US-JNJFOC-20190102791

PATIENT
  Age: 84 Year
  Sex: Female

DRUGS (24)
  1. IMBRUVICA [Suspect]
     Active Substance: IBRUTINIB
     Route: 048
  2. PARACETAMOL [Concomitant]
     Active Substance: ACETAMINOPHEN
  3. PRESERVISION [Concomitant]
     Active Substance: MINERALS\VITAMINS
  4. ASCORBIC ACID W/VACCINIUM MACROCARPON [Concomitant]
  5. BIOTIN [Concomitant]
     Active Substance: BIOTIN
  6. LUNASINE [Concomitant]
  7. IMBRUVICA [Suspect]
     Active Substance: IBRUTINIB
     Route: 048
     Dates: start: 20190610
  8. ASPIRIN. [Concomitant]
     Active Substance: ASPIRIN
  9. POTASSIUM [Concomitant]
     Active Substance: POTASSIUM
  10. TEMAZEPAM. [Concomitant]
     Active Substance: TEMAZEPAM
  11. FLU [Concomitant]
     Active Substance: INFLUENZA VIRUS VACCINE
  12. LATANOPROST. [Concomitant]
     Active Substance: LATANOPROST
     Route: 047
  13. VITAMIN D NOS [Concomitant]
     Active Substance: VITAMIN D NOS
  14. ALEVE [Concomitant]
     Active Substance: NAPROXEN SODIUM
  15. GUAIFENESIN W/THEOPHYLLINE [Concomitant]
  16. VITAMIN C [Concomitant]
     Active Substance: ASCORBIC ACID
  17. IMBRUVICA [Suspect]
     Active Substance: IBRUTINIB
     Indication: CHRONIC LYMPHOCYTIC LEUKAEMIA
     Route: 048
     Dates: start: 20181110, end: 20190510
  18. IMBRUVICA [Suspect]
     Active Substance: IBRUTINIB
     Route: 048
     Dates: start: 20190518
  19. XANAX [Concomitant]
     Active Substance: ALPRAZOLAM
  20. PARACETAMOL [Concomitant]
     Active Substance: ACETAMINOPHEN
  21. MAGNESIUM [Concomitant]
     Active Substance: MAGNESIUM
  22. CRANBERRY. [Concomitant]
     Active Substance: CRANBERRY
  23. VITAMIN D3 [Concomitant]
     Active Substance: CHOLECALCIFEROL
  24. COLACE [Concomitant]
     Active Substance: DOCUSATE SODIUM

REACTIONS (33)
  - Pain in extremity [Not Recovered/Not Resolved]
  - Platelet count decreased [Unknown]
  - Macular degeneration [Not Recovered/Not Resolved]
  - Weight decreased [Not Recovered/Not Resolved]
  - Night sweats [Not Recovered/Not Resolved]
  - Paraesthesia [Not Recovered/Not Resolved]
  - Muscle spasms [Recovering/Resolving]
  - White blood cell count increased [Recovered/Resolved]
  - Asthenia [Recovering/Resolving]
  - Myalgia [Not Recovered/Not Resolved]
  - Pain [Unknown]
  - Depressed mood [Recovering/Resolving]
  - Glaucoma [Not Recovered/Not Resolved]
  - Cough [Unknown]
  - Abdominal lymphadenopathy [Recovered/Resolved]
  - Asthenopia [Not Recovered/Not Resolved]
  - Fatigue [Not Recovered/Not Resolved]
  - Viral infection [Unknown]
  - Sepsis [Recovering/Resolving]
  - Alopecia [Not Recovered/Not Resolved]
  - Nasal dryness [Unknown]
  - Nausea [Unknown]
  - Decreased appetite [Not Recovered/Not Resolved]
  - Chills [Unknown]
  - Muscle twitching [Not Recovered/Not Resolved]
  - Hypophagia [Not Recovered/Not Resolved]
  - Dry eye [Not Recovered/Not Resolved]
  - Epistaxis [Unknown]
  - Cystitis [Recovering/Resolving]
  - Immune system disorder [Unknown]
  - Insomnia [Recovering/Resolving]
  - Pruritus [Not Recovered/Not Resolved]
  - Abdominal pain [Not Recovered/Not Resolved]

NARRATIVE: CASE EVENT DATE: 201811
